FAERS Safety Report 4730666-8 (Version None)
Quarter: 2005Q3

REPORT INFORMATION
  Report Type: 
  Country: None (occurrence: None)
  Receive Date: 20050725
  Receipt Date: 20050302
  Transmission Date: 20060218
  Serious: No
  Sender: FDA-Public Use
  Company Number: USA050392176

PATIENT
  Age: 8 Year
  Sex: Female
  Weight: 30 kg

DRUGS (2)
  1. STRATTERA [Suspect]
     Indication: ATTENTION DEFICIT/HYPERACTIVITY DISORDER
     Dosage: 40 MG AT BEDTIME
     Dates: start: 20050201
  2. ADDERALL 30 [Concomitant]

REACTIONS (3)
  - COLD SWEAT [None]
  - DRUG INEFFECTIVE [None]
  - NAUSEA [None]
